FAERS Safety Report 20058558 (Version 1)
Quarter: 2021Q4

REPORT INFORMATION
  Report Type: Spontaneous
  Country: US (occurrence: None)
  Receive Date: 20211111
  Receipt Date: 20211111
  Transmission Date: 20220303
  Serious: No
  Sender: FDA-Public Use
  Company Number: None

PATIENT

DRUGS (1)
  1. LUGOLS SOLUTION [Suspect]
     Active Substance: IODINE
     Indication: Product used for unknown indication
     Route: 048

REACTIONS (4)
  - Circumstance or information capable of leading to device use error [None]
  - Circumstance or information capable of leading to medication error [None]
  - Incorrect route of product administration [None]
  - Device use error [None]
